FAERS Safety Report 11144611 (Version 1)
Quarter: 2015Q2

REPORT INFORMATION
  Report Type: Spontaneous
  Country: FR (occurrence: FR)
  Receive Date: 20150526
  Receipt Date: 20150526
  Transmission Date: 20150821
  Serious: Yes (Death, Hospitalization)
  Sender: FDA-Public Use
  Company Number: FR-SA-2015SA069162

PATIENT
  Age: 80 Year
  Sex: Male

DRUGS (14)
  1. SOLUPRED [Concomitant]
     Active Substance: PREDNISOLONE
     Dates: start: 201504
  2. TENORMIN [Concomitant]
     Active Substance: ATENOLOL
  3. KARDEGIC [Concomitant]
     Active Substance: ASPIRIN LYSINE
  4. INNOHEP [Concomitant]
     Active Substance: TINZAPARIN SODIUM
  5. OMEPRAZOLE. [Concomitant]
     Active Substance: OMEPRAZOLE
  6. DOCETAXEL. [Concomitant]
     Active Substance: DOCETAXEL
     Dates: start: 20150317
  7. CORVASAL [Concomitant]
     Active Substance: LINSIDOMINE
  8. CRESTOR [Concomitant]
     Active Substance: ROSUVASTATIN CALCIUM
     Route: 048
     Dates: end: 20150428
  9. ONDANSETRON [Concomitant]
     Active Substance: ONDANSETRON
     Indication: PROPHYLAXIS OF NAUSEA AND VOMITING
     Dates: start: 20150414, end: 20150414
  10. CACIT  D3 [Concomitant]
     Active Substance: CALCIUM\CHOLECALCIFEROL
  11. EMEND [Concomitant]
     Active Substance: APREPITANT
     Indication: PROPHYLAXIS OF NAUSEA AND VOMITING
     Route: 048
     Dates: start: 20150414, end: 20150414
  12. VASTAREL [Concomitant]
     Active Substance: TRIMETAZIDINE DIHYDROCHLORIDE
  13. JEVTANA [Suspect]
     Active Substance: CABAZITAXEL
     Route: 042
     Dates: start: 20150414, end: 20150414
  14. PRIMPERAN [Concomitant]
     Active Substance: METOCLOPRAMIDE HYDROCHLORIDE
     Indication: PROPHYLAXIS OF NAUSEA AND VOMITING
     Dates: start: 20150414, end: 20150414

REACTIONS (1)
  - Interstitial lung disease [Fatal]

NARRATIVE: CASE EVENT DATE: 20150424
